FAERS Safety Report 24421395 (Version 1)
Quarter: 2024Q4

REPORT INFORMATION
  Report Type: Spontaneous
  Country: US (occurrence: US)
  Receive Date: 20241010
  Receipt Date: 20241010
  Transmission Date: 20250115
  Serious: Yes (Hospitalization, Other)
  Sender: ALEMBIC
  Company Number: US-ALEMBIC PHARMACUETICALS LIMITED-2024SCAL001469

PATIENT

DRUGS (3)
  1. METHOTREXATE [Suspect]
     Active Substance: METHOTREXATE
     Indication: Rheumatoid arthritis
     Dosage: UNK
     Route: 065
  2. PREDNISONE [Suspect]
     Active Substance: PREDNISONE
     Indication: Rheumatoid arthritis
     Dosage: UNK
     Route: 065
  3. ADALIMUMAB [Suspect]
     Active Substance: ADALIMUMAB
     Indication: Rheumatoid arthritis
     Dosage: UNK
     Route: 065

REACTIONS (12)
  - Shock [Unknown]
  - Pulmonary nocardiosis [Unknown]
  - Cerebral nocardiosis [Unknown]
  - Disseminated aspergillosis [Unknown]
  - Bronchopulmonary aspergillosis [Unknown]
  - Infectious thyroiditis [Unknown]
  - Thyrotoxic crisis [Unknown]
  - Thyroxine free increased [Unknown]
  - Blood thyroid stimulating hormone decreased [Unknown]
  - Malaise [Unknown]
  - Dyspnoea [Unknown]
  - Mental status changes [Unknown]
